FAERS Safety Report 11886685 (Version 2)
Quarter: 2016Q1

REPORT INFORMATION
  Report Type: Report from Study
  Country: US (occurrence: US)
  Receive Date: 20160104
  Receipt Date: 20160104
  Transmission Date: 20160526
  Serious: Yes (Other)
  Sender: FDA-Public Use
  Company Number: US-BIOGEN-2007BI007086

PATIENT
  Age: 68 Year
  Sex: Female
  Weight: 55.39 kg

DRUGS (2)
  1. AVONEX [Suspect]
     Active Substance: INTERFERON BETA-1A
     Indication: MULTIPLE SCLEROSIS
     Route: 030
     Dates: start: 20011026, end: 200607
  2. AVONEX [Suspect]
     Active Substance: INTERFERON BETA-1A
     Route: 030
     Dates: start: 200607, end: 20070324

REACTIONS (1)
  - Ewing^s sarcoma [Not Recovered/Not Resolved]

NARRATIVE: CASE EVENT DATE: 20070209
